FAERS Safety Report 8020288-8 (Version None)
Quarter: 2012Q1

REPORT INFORMATION
  Report Type: 
  Country: None (occurrence: None)
  Receive Date: 20120103
  Receipt Date: 20111228
  Transmission Date: 20120608
  Serious: Yes (Hospitalization)
  Sender: FDA-Public Use
  Company Number: FR-ROCHE-1004295

PATIENT
  Sex: Female

DRUGS (11)
  1. ALDALIX [Concomitant]
  2. ALLOPURINOL [Concomitant]
  3. ESCITALOPRAM OXALATE [Concomitant]
     Route: 048
  4. CACIT [Concomitant]
     Dates: start: 20110901, end: 20111101
  5. ACTONEL [Concomitant]
     Indication: OSTEOPOROSIS
     Route: 048
     Dates: start: 20110901, end: 20111101
  6. ACTONEL [Concomitant]
     Route: 048
  7. MABTHERA [Suspect]
     Indication: RHEUMATOID ARTHRITIS
     Route: 042
     Dates: start: 20110504
  8. ALPRAZOLAM [Concomitant]
  9. LYRICA [Concomitant]
     Dosage: 100 MG IN MORNING, 125 MG IN EVENING
     Route: 048
  10. PANTOPRAZOLE [Concomitant]
  11. OXYCONTIN [Concomitant]
     Dosage: 10MG IN MORNING, 15 MG IN TEH EVENING
     Route: 048

REACTIONS (2)
  - SARCOIDOSIS [None]
  - DERMATITIS PSORIASIFORM [None]
